FAERS Safety Report 5561528-4 (Version None)
Quarter: 2007Q4

REPORT INFORMATION
  Report Type: 
  Country: None (occurrence: None)
  Receive Date: 20071215
  Receipt Date: 20071019
  Transmission Date: 20080405
  Serious: No
  Sender: FDA-Public Use
  Company Number: US-AMGEN-KDL247974

PATIENT
  Sex: Female
  Weight: 93.1 kg

DRUGS (4)
  1. ENBREL [Suspect]
     Indication: PSORIATIC ARTHROPATHY
     Route: 058
     Dates: start: 20070912
  2. ENBREL [Suspect]
     Indication: PSORIASIS
  3. METHOTREXATE [Concomitant]
     Dates: start: 20070502
  4. ALLEGRA [Concomitant]
     Dates: start: 20071001

REACTIONS (2)
  - EYE SWELLING [None]
  - LACRIMATION INCREASED [None]
